FAERS Safety Report 8884234 (Version 1)
Quarter: 2012Q4

REPORT INFORMATION
  Report Type: 
  Country: US (occurrence: US)
  Receive Date: 20121102
  Receipt Date: 20121102
  Transmission Date: 20130627
  Serious: No
  Sender: FDA-Public Use
  Company Number: US-ASTRAZENECA-2012SE11853

PATIENT
  Age: 49 Year
  Sex: Female
  Weight: 104.3 kg

DRUGS (1)
  1. CRESTOR [Suspect]
     Route: 048
     Dates: start: 20120217, end: 20120219

REACTIONS (4)
  - Hypertension [Unknown]
  - Eye irritation [Unknown]
  - Headache [Unknown]
  - Rash generalised [Recovered/Resolved]
